FAERS Safety Report 8946124 (Version 1)
Quarter: 2012Q4

REPORT INFORMATION
  Report Type: 
  Country: US (occurrence: US)
  Receive Date: 20121204
  Receipt Date: 20121204
  Transmission Date: 20130627
  Serious: No
  Sender: FDA-Public Use
  Company Number: US-AMGEN-USASP2012072837

PATIENT
  Age: 4 Year
  Sex: Female

DRUGS (3)
  1. ENBREL [Suspect]
     Indication: JUVENILE ARTHRITIS
     Dosage: 25 mg, weekly
     Dates: start: 20121016
  2. METHOTREXATE [Concomitant]
     Dosage: 25 mg,
  3. METHOTREXATE [Concomitant]

REACTIONS (1)
  - Wrong technique in drug usage process [Unknown]
